FAERS Safety Report 13642145 (Version 2)
Quarter: 2017Q3

REPORT INFORMATION
  Report Type: Spontaneous
  Country: IT (occurrence: IT)
  Receive Date: 20170612
  Receipt Date: 20170807
  Transmission Date: 20171127
  Serious: Yes (Other)
  Sender: FDA-Public Use
  Company Number: IT-AUROBINDO-AUR-APL-2017-35158

PATIENT
  Age: 71 Year
  Sex: Female

DRUGS (1)
  1. CLOPIDOGREL [Suspect]
     Active Substance: CLOPIDOGREL BISULFATE
     Indication: MYOCARDIAL ISCHAEMIA
     Dosage: 75 MG, DAILY
     Route: 048
     Dates: start: 20170508, end: 20170516

REACTIONS (6)
  - Gingival swelling [Unknown]
  - Arrhythmia [Unknown]
  - Lip oedema [Unknown]
  - Malaise [Unknown]
  - Gravitational oedema [Unknown]
  - Vertigo [Unknown]

NARRATIVE: CASE EVENT DATE: 20170508
